FAERS Safety Report 20291456 (Version 2)
Quarter: 2022Q1

REPORT INFORMATION
  Report Type: Spontaneous
  Country: US (occurrence: US)
  Receive Date: 20220104
  Receipt Date: 20220222
  Transmission Date: 20220423
  Serious: Yes (Hospitalization, Other)
  Sender: FDA-Public Use
  Company Number: US-GILEAD-2021-0563540

PATIENT
  Age: 79 Year
  Sex: Female
  Weight: 55.5 kg

DRUGS (22)
  1. VEKLURY [Suspect]
     Active Substance: REMDESIVIR
     Indication: COVID-19
     Dosage: UNK
     Route: 042
     Dates: start: 20211217, end: 20211217
  2. CASIRIVIMAB\IMDEVIMAB [Concomitant]
     Active Substance: CASIRIVIMAB\IMDEVIMAB
     Dosage: UNK
     Dates: start: 20211217
  3. DEXAMETHASONE [Concomitant]
     Active Substance: DEXAMETHASONE
  4. OXYGEN [Concomitant]
     Active Substance: OXYGEN
  5. ACYCLOVIR [Concomitant]
     Active Substance: ACYCLOVIR
  6. CEFUROXIME [Concomitant]
     Active Substance: CEFUROXIME
  7. GABAPENTIN [Concomitant]
     Active Substance: GABAPENTIN
  8. LORAZEPAM [Concomitant]
     Active Substance: LORAZEPAM
  9. PAROXETINE [Concomitant]
     Active Substance: PAROXETINE
  10. POTASSIUM CHLORIDE [Concomitant]
     Active Substance: POTASSIUM CHLORIDE
  11. ONDANSETRON [Concomitant]
     Active Substance: ONDANSETRON
  12. PROPRANOLOL [Concomitant]
     Active Substance: PROPRANOLOL HYDROCHLORIDE
  13. CHOLECALCIFEROL [Concomitant]
     Active Substance: CHOLECALCIFEROL
  14. AZITHROMYCIN [Concomitant]
     Active Substance: AZITHROMYCIN
  15. CEFTRIAXONE [Concomitant]
     Active Substance: CEFTRIAXONE
  16. INFLUENZA VIRUS VACCINE [Concomitant]
     Active Substance: INFLUENZA VIRUS VACCINE
  17. ACETAMINOPHEN [Concomitant]
     Active Substance: ACETAMINOPHEN
  18. SODIUM CHLORIDE [Concomitant]
     Active Substance: SODIUM CHLORIDE
  19. ENOXAPARIN [Concomitant]
     Active Substance: ENOXAPARIN
  20. BENZONATATE [Concomitant]
     Active Substance: BENZONATATE
  21. ASCORBIC ACID [Concomitant]
     Active Substance: ASCORBIC ACID
  22. SODIUM CHLORIDE [Concomitant]
     Active Substance: SODIUM CHLORIDE

REACTIONS (2)
  - Bradycardia [Not Recovered/Not Resolved]
  - Hypothermia [Recovered/Resolved]

NARRATIVE: CASE EVENT DATE: 20211217
